FAERS Safety Report 20802488 (Version 1)
Quarter: 2022Q2

REPORT INFORMATION
  Report Type: Spontaneous
  Country: US (occurrence: None)
  Receive Date: 20220509
  Receipt Date: 20220509
  Transmission Date: 20220721
  Serious: No
  Sender: FDA-Public Use
  Company Number: None

PATIENT
  Age: 75 Year
  Sex: Male

DRUGS (1)
  1. APIXABAN [Suspect]
     Active Substance: APIXABAN
     Indication: Atrial fibrillation
     Dosage: FREQUENCY : TWICE A DAY;?
     Route: 048
     Dates: start: 20190624, end: 20220406

REACTIONS (7)
  - Upper gastrointestinal haemorrhage [None]
  - Hypotension [None]
  - Anaemia [None]
  - Acute kidney injury [None]
  - Chronic kidney disease [None]
  - Hyperkalaemia [None]
  - Haemolysis [None]

NARRATIVE: CASE EVENT DATE: 20220331
